FAERS Safety Report 8797687 (Version 1)
Quarter: 2012Q4

REPORT INFORMATION
  Report Type: 
  Country: CN (occurrence: CN)
  Receive Date: 20120920
  Receipt Date: 20120920
  Transmission Date: 20130627
  Serious: Yes (Hospitalization)
  Sender: FDA-Public Use
  Company Number: CN-BAYER-2012-097273

PATIENT

DRUGS (3)
  1. BAYASPIRIN [Suspect]
  2. BETALOC [Suspect]
  3. TRIMETAZIDINE [Suspect]

REACTIONS (4)
  - Palpitations [Recovered/Resolved]
  - Chest discomfort [Recovered/Resolved]
  - Hyperpyrexia [Recovered/Resolved]
  - Multi-organ failure [Recovered/Resolved]
